FAERS Safety Report 16304973 (Version 2)
Quarter: 2019Q2

REPORT INFORMATION
  Report Type: Spontaneous
  Country: NL (occurrence: NL)
  Receive Date: 20190513
  Receipt Date: 20190521
  Transmission Date: 20190711
  Serious: Yes (Hospitalization)
  Sender: FDA-Public Use
  Company Number: NL-GUERBET-NL-20190016

PATIENT
  Age: 64 Year
  Sex: Female
  Weight: 100 kg

DRUGS (1)
  1. DOTAREM [Suspect]
     Active Substance: GADOTERATE MEGLUMINE
     Indication: NUCLEAR MAGNETIC RESONANCE IMAGING HEART
     Route: 042
     Dates: start: 20190502, end: 20190502

REACTIONS (5)
  - Cardiac failure [Recovering/Resolving]
  - Bronchospasm [Recovering/Resolving]
  - Chest discomfort [Recovering/Resolving]
  - Anaphylactic reaction [Recovering/Resolving]
  - Dyspnoea [Recovering/Resolving]

NARRATIVE: CASE EVENT DATE: 20190502
